FAERS Safety Report 26150370 (Version 1)
Quarter: 2025Q4

REPORT INFORMATION
  Report Type: Spontaneous
  Country: US (occurrence: US)
  Receive Date: 20251212
  Receipt Date: 20251212
  Transmission Date: 20260117
  Serious: No
  Sender: ALCON
  Company Number: US-ALCON LABORATORIES-ALC2025US005844

PATIENT
  Sex: Female

DRUGS (3)
  1. ACOLTREMON [Suspect]
     Active Substance: ACOLTREMON
     Indication: Dry eye
     Dosage: INSTILL 1 DROP INTO AFFECTED EYE(S) TWICE A DAY FOR DRYING AND INFLAMMATION OF CORNEA AND CONJUNCTIV
     Route: 047
     Dates: start: 20250828
  2. ACOLTREMON [Suspect]
     Active Substance: ACOLTREMON
     Indication: Keratitis
  3. VEVYE [Concomitant]
     Active Substance: CYCLOSPORINE
     Indication: Product used for unknown indication
     Dosage: UNK
     Route: 065

REACTIONS (3)
  - Eye pain [Unknown]
  - Photopsia [Unknown]
  - Vitreous floaters [Unknown]
